FAERS Safety Report 10418966 (Version 1)
Quarter: 2014Q3

REPORT INFORMATION
  Report Type: Spontaneous
  Country: DE (occurrence: None)
  Receive Date: 20140827
  Receipt Date: 20140827
  Transmission Date: 20150326
  Serious: Yes (Other)
  Sender: FDA-Public Use
  Company Number: AUR-APL-2014-09125

PATIENT
  Age: 31 Year
  Sex: Female

DRUGS (2)
  1. METOPROLOL [Suspect]
     Active Substance: METOPROLOL
     Indication: MIGRAINE PROPHYLAXIS
     Dosage: 1OO MG DAILY , ORAL.
     Dates: start: 20120116, end: 20120609
  2. FOLIO FORTE (FOLIC ACID, POTASSIUM IODIDE, VITAMIN B12 NOS) [Concomitant]

REACTIONS (3)
  - Exposure during pregnancy [None]
  - Foetal growth restriction [None]
  - Maternal exposure during pregnancy [None]
